FAERS Safety Report 16002287 (Version 1)
Quarter: 2019Q1

REPORT INFORMATION
  Report Type: Report from Study
  Country: US (occurrence: US)
  Receive Date: 20190225
  Receipt Date: 20190225
  Transmission Date: 20190418
  Serious: Yes (Death)
  Sender: FDA-Public Use
  Company Number: US-ACTELION-A-NJ2017-164435

PATIENT
  Age: 68 Year
  Sex: Female

DRUGS (13)
  1. OPSUMIT [Suspect]
     Active Substance: MACITENTAN
     Indication: PULMONARY ARTERIAL HYPERTENSION
     Dosage: 1 TABLET, QD
     Route: 048
     Dates: start: 20171019
  2. ADEMPAS [Concomitant]
     Active Substance: RIOCIGUAT
     Indication: PULMONARY ARTERIAL HYPERTENSION
     Dosage: UNK
     Dates: start: 201712
  3. LOPERAMIDE [Concomitant]
     Active Substance: LOPERAMIDE
     Dosage: 2 MG, UNK
  4. ATORVASTATIN [Concomitant]
     Active Substance: ATORVASTATIN
     Dosage: 20 MG, UNK
  5. LISINOPRIL. [Concomitant]
     Active Substance: LISINOPRIL
     Dosage: 10 MG, UNK
  6. VENTOLIN HFA [Concomitant]
     Active Substance: ALBUTEROL SULFATE
  7. MAGNESIUM [Concomitant]
     Active Substance: MAGNESIUM
     Dosage: 500 MG, UNK
  8. POTASSIUM [Concomitant]
     Active Substance: POTASSIUM
     Dosage: 20 MEQ, UNK
  9. LEVOTHYROXINE. [Concomitant]
     Active Substance: LEVOTHYROXINE
     Dosage: 88 MCG, UNK
  10. ORENITRAM [Concomitant]
     Active Substance: TREPROSTINIL
     Indication: PULMONARY ARTERIAL HYPERTENSION
     Dosage: UNK
     Dates: start: 201712
  11. LASIX [Concomitant]
     Active Substance: FUROSEMIDE
     Dosage: 40 MG, UNK
  12. OFEV [Concomitant]
     Active Substance: NINTEDANIB
     Dosage: 150 MG, UNK
  13. RANITIDINE. [Concomitant]
     Active Substance: RANITIDINE
     Dosage: 150 MG, UNK

REACTIONS (2)
  - Pulmonary arterial hypertension [Unknown]
  - Death [Fatal]

NARRATIVE: CASE EVENT DATE: 201712
